FAERS Safety Report 26027387 (Version 1)
Quarter: 2025Q4

REPORT INFORMATION
  Report Type: Spontaneous
  Country: US (occurrence: None)
  Receive Date: 20251111
  Receipt Date: 20251111
  Transmission Date: 20260117
  Serious: Yes (Hospitalization)
  Sender: FDA-CTU
  Company Number: None

PATIENT
  Age: 32 Year
  Sex: Female
  Weight: 90.6 kg

DRUGS (1)
  1. PACLITAXEL [Suspect]
     Active Substance: PACLITAXEL
     Indication: Breast cancer female
     Dosage: 166 MG INTRAVENOUS
     Route: 042
     Dates: start: 20251031

REACTIONS (11)
  - Infusion related reaction [None]
  - Chest discomfort [None]
  - Epigastric discomfort [None]
  - Flushing [None]
  - Nausea [None]
  - Vomiting [None]
  - Hyperhidrosis [None]
  - Dyspnoea [None]
  - Slow response to stimuli [None]
  - Hypotension [None]
  - Oxygen saturation decreased [None]

NARRATIVE: CASE EVENT DATE: 20251031
